FAERS Safety Report 8789932 (Version 1)
Quarter: 2012Q4

REPORT INFORMATION
  Report Type: 
  Country: US (occurrence: US)
  Receive Date: 20120914
  Receipt Date: 20120914
  Transmission Date: 20130627
  Serious: Yes (Hospitalization, Other)
  Sender: FDA-Public Use
  Company Number: US-ELI_LILLY_AND_COMPANY-US201209001683

PATIENT
  Age: 81 Year
  Sex: Male

DRUGS (3)
  1. HUMALOG LISPRO [Suspect]
     Indication: TYPE 2 DIABETES MELLITUS
     Dosage: UNK, prn
  2. LANTUS [Concomitant]
  3. DIURETICS [Concomitant]

REACTIONS (4)
  - Renal failure [Not Recovered/Not Resolved]
  - Knee arthroplasty [Unknown]
  - Device related infection [Not Recovered/Not Resolved]
  - Insomnia [Not Recovered/Not Resolved]
